FAERS Safety Report 6719140-7 (Version None)
Quarter: 2010Q2

REPORT INFORMATION
  Report Type: 
  Country: None (occurrence: None)
  Receive Date: 20100510
  Receipt Date: 20100510
  Transmission Date: 20101027
  Serious: No
  Sender: FDA-Public Use
  Company Number: None

PATIENT
  Age: 85 Year
  Sex: Male
  Weight: 86.1834 kg

DRUGS (1)
  1. CEPHALEXIN [Suspect]
     Dosage: 500MG

REACTIONS (3)
  - CONDITION AGGRAVATED [None]
  - PARADOXICAL DRUG REACTION [None]
  - SWELLING [None]
